FAERS Safety Report 22607543 (Version 1)
Quarter: 2023Q2

REPORT INFORMATION
  Report Type: Spontaneous
  Country: US (occurrence: US)
  Receive Date: 20230616
  Receipt Date: 20230616
  Transmission Date: 20230721
  Serious: Yes (Other)
  Sender: FDA-Public Use
  Company Number: US-APOTEX-2023AP008907

PATIENT
  Age: 75 Year
  Sex: Male

DRUGS (6)
  1. CLOPIDOGREL [Suspect]
     Active Substance: CLOPIDOGREL BISULFATE
     Indication: Antiplatelet therapy
     Dosage: UNK
     Route: 065
  2. ASPIRIN [Suspect]
     Active Substance: ASPIRIN
     Indication: Analgesic intervention supportive therapy
     Dosage: 81 MILLIGRAM
     Route: 065
  3. APIXABAN [Suspect]
     Active Substance: APIXABAN
     Indication: Hepatitis C
     Dosage: 5 MILLIGRAM, BID
     Route: 048
  4. APIXABAN [Suspect]
     Active Substance: APIXABAN
     Indication: Hepatic cirrhosis
  5. ELBASVIR\GRAZOPREVIR [Suspect]
     Active Substance: ELBASVIR\GRAZOPREVIR
     Indication: Hepatitis C
     Dosage: UNK
     Route: 065
  6. ELBASVIR\GRAZOPREVIR [Suspect]
     Active Substance: ELBASVIR\GRAZOPREVIR
     Indication: Hepatic cirrhosis

REACTIONS (1)
  - Haemorrhage [Unknown]
